FAERS Safety Report 10485655 (Version 1)
Quarter: 2014Q4

REPORT INFORMATION
  Report Type: Report from Study
  Country: ES (occurrence: ES)
  Receive Date: 20141001
  Receipt Date: 20141001
  Transmission Date: 20150528
  Serious: Yes (Other)
  Sender: FDA-Public Use
  Company Number: ES-AMGEN-ESPSP2014074179

PATIENT
  Sex: Female
  Weight: 63 kg

DRUGS (1)
  1. PROLIA [Suspect]
     Active Substance: DENOSUMAB
     Indication: OSTEOPOROSIS POSTMENOPAUSAL
     Route: 065

REACTIONS (7)
  - Breast cancer [Unknown]
  - Surgery [Unknown]
  - Hypertension [Unknown]
  - Cerebrovascular disorder [Unknown]
  - Gastrointestinal disorder [Unknown]
  - Activities of daily living impaired [Unknown]
  - Immobile [Unknown]
